FAERS Safety Report 4839014-6 (Version None)
Quarter: 2005Q4

REPORT INFORMATION
  Report Type: 
  Country: None (occurrence: None)
  Receive Date: 20051024
  Receipt Date: 20050705
  Transmission Date: 20060501
  Serious: Yes (Other)
  Sender: FDA-Public Use
  Company Number: 2005098680

PATIENT
  Sex: Female

DRUGS (1)
  1. RELPAX [Suspect]
     Indication: MIGRAINE
     Dosage: UNK (40 MG, 1 AS NECESSARY), ORAL
     Route: 048
     Dates: start: 20040101

REACTIONS (5)
  - DRUG ADMINISTRATION ERROR [None]
  - FATIGUE [None]
  - HYPERTENSION [None]
  - MALAISE [None]
  - MIGRAINE [None]
